FAERS Safety Report 6371788-8 (Version None)
Quarter: 2009Q3

REPORT INFORMATION
  Report Type: 
  Country: None (occurrence: None)
  Receive Date: 20090923
  Receipt Date: 20090921
  Transmission Date: 20100115
  Serious: Yes (Life-Threatening, Hospitalization, Other)
  Sender: FDA-Public Use
  Company Number: GB-WYE-G04474809

PATIENT
  Age: 72 Year
  Sex: Female

DRUGS (1)
  1. TAZOCIN [Suspect]
     Indication: PYELONEPHRITIS
     Dosage: UNKNOWN
     Route: 042

REACTIONS (2)
  - ABDOMINAL DISCOMFORT [None]
  - ACUTE MYOCARDIAL INFARCTION [None]
